FAERS Safety Report 6402991-6 (Version None)
Quarter: 2009Q4

REPORT INFORMATION
  Report Type: 
  Country: None (occurrence: None)
  Receive Date: 20091016
  Receipt Date: 20091012
  Transmission Date: 20100525
  Serious: Yes (Death, Hospitalization)
  Sender: FDA-Public Use
  Company Number: US-CELGENEUS-163-50794-09101120

PATIENT
  Age: 70 Year
  Sex: Female

DRUGS (2)
  1. VIDAZA [Suspect]
     Indication: MYELODYSPLASTIC SYNDROME
     Route: 058
  2. VIDAZA [Suspect]
     Route: 051

REACTIONS (5)
  - DIARRHOEA [None]
  - INJECTION SITE PAIN [None]
  - NECROTISING FASCIITIS [None]
  - PANCYTOPENIA [None]
  - PYREXIA [None]
